FAERS Safety Report 10188297 (Version 1)
Quarter: 2014Q2

REPORT INFORMATION
  Report Type: Spontaneous
  Country: DK (occurrence: None)
  Receive Date: 20140520
  Receipt Date: 20140520
  Transmission Date: 20141212
  Serious: Yes (Other)
  Sender: FDA-Public Use
  Company Number: 2014P1004083

PATIENT
  Age: 67 Year
  Sex: Male

DRUGS (3)
  1. EPINEPHRINE [Suspect]
     Indication: OEDEMA MUCOSAL
     Route: 045
  2. COCAINE [Suspect]
     Indication: OEDEMA MUCOSAL
     Route: 045
  3. MAGNESIUM SUPPLEMENT [Concomitant]

REACTIONS (12)
  - Pallor [None]
  - Cold sweat [None]
  - Nausea [None]
  - Hypertension [None]
  - Tachycardia [None]
  - Blood pressure decreased [None]
  - Stress cardiomyopathy [None]
  - Tricuspid valve incompetence [None]
  - Pulmonary embolism [None]
  - Pulmonary hypertension [None]
  - Cardiac failure congestive [None]
  - Post procedural complication [None]
